FAERS Safety Report 15827289 (Version 1)
Quarter: 2019Q1

REPORT INFORMATION
  Report Type: Report from Study
  Country: IE (occurrence: IE)
  Receive Date: 20190115
  Receipt Date: 20190115
  Transmission Date: 20190417
  Serious: Yes (Hospitalization)
  Sender: FDA-Public Use
  Company Number: IE-ASTRAZENECA-2019SE06616

PATIENT
  Age: 1 Year
  Sex: Male

DRUGS (1)
  1. SYNAGIS [Suspect]
     Active Substance: PALIVIZUMAB
     Indication: PREMATURE BABY
     Dosage: ON 11-OCT-2017 AND ON 10-DEC-2018
     Route: 030
     Dates: start: 20171011, end: 20181210

REACTIONS (4)
  - Oxygen saturation abnormal [Recovering/Resolving]
  - Urticaria [Not Recovered/Not Resolved]
  - Dyspnoea [Recovering/Resolving]
  - Rash [Not Recovered/Not Resolved]

NARRATIVE: CASE EVENT DATE: 2018
